FAERS Safety Report 8478670-0 (Version None)
Quarter: 2012Q2

REPORT INFORMATION
  Report Type: 
  Country: None (occurrence: None)
  Receive Date: 20120629
  Receipt Date: 20120419
  Transmission Date: 20120825
  Serious: No
  Sender: FDA-Public Use
  Company Number: US-FOUGERA-2012FO001074

PATIENT
  Age: 60 Year
  Sex: Female
  Weight: 108.86 kg

DRUGS (12)
  1. DIFLORASONE DIACETATE [Suspect]
     Indication: PRODUCT USED FOR UNKNOWN INDICATION
  2. LYSTEDA [Suspect]
     Indication: PLATELET DISORDER
  3. POLYMYXIN B SULFATE [Suspect]
     Indication: PRODUCT USED FOR UNKNOWN INDICATION
  4. CARAFATE [Suspect]
     Indication: PRODUCT USED FOR UNKNOWN INDICATION
  5. METRONIDAZOLE [Suspect]
     Indication: PRODUCT USED FOR UNKNOWN INDICATION
     Route: 061
  6. FLUTICASONE PROPIONATE [Suspect]
     Indication: PRODUCT USED FOR UNKNOWN INDICATION
     Dates: end: 20120401
  7. DESONIDE [Suspect]
     Indication: PRODUCT USED FOR UNKNOWN INDICATION
  8. LIDOCAINE [Suspect]
     Indication: PRODUCT USED FOR UNKNOWN INDICATION
  9. ACETAMINOPHEN [Concomitant]
     Indication: HEADACHE
  10. VITAMIN E [Suspect]
     Indication: PRODUCT USED FOR UNKNOWN INDICATION
  11. AMICAR [Suspect]
     Indication: PRODUCT USED FOR UNKNOWN INDICATION
  12. TRETINOIN [Suspect]
     Indication: PRODUCT USED FOR UNKNOWN INDICATION

REACTIONS (7)
  - CONDITION AGGRAVATED [None]
  - EPISTAXIS [None]
  - NAUSEA [None]
  - HEADACHE [None]
  - VOMITING [None]
  - ECZEMA [None]
  - HAEMORRHAGE [None]
